FAERS Safety Report 9201772 (Version 1)
Quarter: 2013Q2

REPORT INFORMATION
  Report Type: Spontaneous
  Country: US (occurrence: US)
  Receive Date: 20130401
  Receipt Date: 20130401
  Transmission Date: 20140414
  Serious: No
  Sender: FDA-Public Use
  Company Number: US-ASTRAZENECA-2013SE18219

PATIENT
  Age: 73 Year
  Sex: Male
  Weight: 81.6 kg

DRUGS (7)
  1. CRESTOR [Suspect]
     Indication: BLOOD CHOLESTEROL
     Route: 048
     Dates: start: 201206, end: 201208
  2. CRESTOR [Suspect]
     Indication: BLOOD CHOLESTEROL
     Route: 048
     Dates: start: 201208
  3. METOPROLOL [Suspect]
     Indication: ARRHYTHMIA
     Route: 048
  4. FLOMAX [Concomitant]
     Indication: PROSTATIC DISORDER
  5. ANTIOXIDANT SUPPLEMETS [Concomitant]
  6. PROVACOL [Concomitant]
  7. ZETIA [Concomitant]

REACTIONS (3)
  - Age-related macular degeneration [Not Recovered/Not Resolved]
  - Musculoskeletal stiffness [Not Recovered/Not Resolved]
  - Intentional drug misuse [Unknown]
